FAERS Safety Report 8484087-5 (Version None)
Quarter: 2012Q3

REPORT INFORMATION
  Report Type: 
  Country: None (occurrence: None)
  Receive Date: 20120703
  Receipt Date: 20120625
  Transmission Date: 20120928
  Serious: Yes (Other)
  Sender: FDA-Public Use
  Company Number: US-BAYER-2011-074765

PATIENT
  Age: 27 Year
  Sex: Female
  Weight: 80.726 kg

DRUGS (23)
  1. IUD NOS [Concomitant]
     Route: 015
  2. CEFDINIR [Concomitant]
     Dosage: 300 MG, BID, FOR 14 DAYS
     Route: 048
  3. PSEUDOVENT [Concomitant]
     Dosage: 120-400 MG, 1 CAPSULE TWICE DAILY, 10 DAYS SUPPLY
     Route: 048
  4. SYNTHROID [Concomitant]
  5. CIPRODEX [Concomitant]
     Dosage: 7.5 ML, UNK
  6. PHENTERMINE [Concomitant]
     Dosage: 30 MG, ONCE
     Route: 048
  7. STEROID [Concomitant]
  8. VERSED [Concomitant]
     Dosage: 2 MG, UNK
     Route: 042
  9. CEPHALEXIN [Concomitant]
  10. REGLAN [Concomitant]
     Dosage: 10 MG, UNK
     Route: 042
  11. PREDNISONE TAB [Concomitant]
  12. CEFZIL [Concomitant]
  13. ACIPHEX [Concomitant]
  14. ANCEF [Concomitant]
     Dosage: 1 MG, UNK
     Route: 042
  15. ROBINUL [Concomitant]
     Dosage: 1 MG, UNK
  16. SOLU-CORTEF [Concomitant]
     Dosage: 100 MG, UNK
     Route: 042
  17. HYDROCODONE [Concomitant]
     Dosage: 7.5/500,1 TABLET EVERY 4 HR AS NEEDED
     Route: 048
  18. YAZ [Suspect]
     Indication: CONTRACEPTION
     Dosage: UNK
     Dates: start: 20050601, end: 20070101
  19. PROTONIX [Concomitant]
  20. CYCLOBENZAPRINE [Concomitant]
     Dosage: UNK
     Route: 048
  21. OMEPRAZOLE [Concomitant]
     Dosage: 20 MG, BID
     Route: 048
  22. YASMIN [Suspect]
     Indication: CONTRACEPTION
     Dosage: UNK
     Dates: start: 20050601, end: 20070101
  23. ZOLPIDEM [Concomitant]
     Dosage: UNK UNK, HS
     Route: 048

REACTIONS (4)
  - PAIN [None]
  - ABORTION [None]
  - DEEP VEIN THROMBOSIS [None]
  - INJURY [None]
